FAERS Safety Report 6406355-0 (Version None)
Quarter: 2009Q4

REPORT INFORMATION
  Report Type: 
  Country: None (occurrence: None)
  Receive Date: 20091019
  Receipt Date: 20091014
  Transmission Date: 20100525
  Serious: Yes (Life-Threatening, Hospitalization)
  Sender: FDA-Public Use
  Company Number: PHHY2009HR44333

PATIENT
  Sex: Male

DRUGS (3)
  1. LEPONEX [Suspect]
     Indication: SCHIZOPHRENIA
     Dosage: 12.5 MG
     Route: 048
  2. FLUPHENAZINE [Concomitant]
     Dosage: 1MG IN THE MORNING
  3. SULPIRID [Concomitant]
     Dosage: 2 X 50MG

REACTIONS (2)
  - HEPATIC LESION [None]
  - JAUNDICE [None]
